FAERS Safety Report 24812595 (Version 1)
Quarter: 2025Q1

REPORT INFORMATION
  Report Type: Report from Study
  Country: FR (occurrence: FR)
  Receive Date: 20250107
  Receipt Date: 20250107
  Transmission Date: 20250409
  Serious: Yes (Other)
  Sender: UCB
  Company Number: FR-UCBSA-2024052348

PATIENT
  Sex: Female
  Weight: 87 kg

DRUGS (2)
  1. ZILUCOPLAN [Suspect]
     Active Substance: ZILUCOPLAN
     Indication: Product used for unknown indication
  2. ZILUCOPLAN [Suspect]
     Active Substance: ZILUCOPLAN
     Indication: Myasthenia gravis
     Dates: start: 20240703, end: 20240703

REACTIONS (2)
  - Hepatic enzyme abnormal [Recovering/Resolving]
  - Gamma-glutamyltransferase increased [Recovering/Resolving]

NARRATIVE: CASE EVENT DATE: 20241001
